FAERS Safety Report 4878366-8 (Version None)
Quarter: 2005Q4

REPORT INFORMATION
  Report Type: 
  Country: None (occurrence: None)
  Receive Date: 20051206
  Receipt Date: 20050901
  Transmission Date: 20060501
  Serious: No
  Sender: FDA-Public Use
  Company Number: USA0509107080

PATIENT
  Age: 46 Year
  Sex: Female

DRUGS (5)
  1. CYMBALTA [Suspect]
     Indication: DEPRESSION
     Dosage: 90 MG
     Dates: start: 20050321
  2. TEMAZEPAM [Concomitant]
  3. GABAPENTIN [Concomitant]
  4. REQUIP [Concomitant]
  5. CARBIDOPA W/LEVODOPA [Concomitant]

REACTIONS (1)
  - BLOOD PRESSURE INCREASED [None]
